FAERS Safety Report 9929269 (Version 1)
Quarter: 2014Q1

REPORT INFORMATION
  Report Type: Spontaneous
  Country: SE (occurrence: None)
  Receive Date: 20140221
  Receipt Date: 20140221
  Transmission Date: 20141002
  Serious: Yes (Hospitalization)
  Sender: FDA-Public Use
  Company Number: SYM-2014-15125

PATIENT
  Age: 40 Year
  Sex: Female

DRUGS (1)
  1. VOXRA [Suspect]
     Indication: DEPRESSION
     Route: 048
     Dates: start: 201310, end: 201310

REACTIONS (1)
  - Skin reaction [None]
